FAERS Safety Report 11985456 (Version 4)
Quarter: 2016Q1

REPORT INFORMATION
  Report Type: Spontaneous
  Country: JP (occurrence: JP)
  Receive Date: 20160201
  Receipt Date: 20160330
  Transmission Date: 20160526
  Serious: Yes (Hospitalization, Other)
  Sender: FDA-Public Use
  Company Number: JP-GILEAD-2016-0194285

PATIENT
  Age: 76 Year
  Sex: Female
  Weight: 53.4 kg

DRUGS (7)
  1. RABEPRAZOLE [Concomitant]
     Active Substance: RABEPRAZOLE
     Dosage: 1 DF, UNK
     Route: 048
  2. HARVONI [Suspect]
     Active Substance: LEDIPASVIR\SOFOSBUVIR
     Indication: HEPATIC CIRRHOSIS
     Dosage: 1 DF, QD
     Route: 048
     Dates: start: 20160113, end: 20160116
  3. MAGLAX [Concomitant]
     Active Substance: MAGNESIUM OXIDE
     Dosage: 1 DF, TID
     Route: 048
  4. URSODEOXYCHOLIC AC [Concomitant]
     Dosage: 2 DF, TID
     Route: 048
  5. OLMETEC [Concomitant]
     Active Substance: OLMESARTAN MEDOXOMIL
     Dosage: 1 DF, QD
     Route: 048
  6. JUZENTAIHOTO                       /07985601/ [Concomitant]
     Active Substance: HERBALS
     Dosage: 1 SACHET, TID
     Route: 048
  7. AMLODIPINE [Concomitant]
     Active Substance: AMLODIPINE BESYLATE
     Dosage: 0.5 DF, QD
     Route: 048

REACTIONS (3)
  - Therapy cessation [Recovered/Resolved]
  - Hepatic encephalopathy [Recovered/Resolved]
  - Feeding disorder [Recovered/Resolved]

NARRATIVE: CASE EVENT DATE: 20160116
